FAERS Safety Report 10676379 (Version 2)
Quarter: 2019Q1

REPORT INFORMATION
  Report Type: Spontaneous
  Country: GB (occurrence: GB)
  Receive Date: 20141226
  Receipt Date: 20190116
  Transmission Date: 20190417
  Serious: Yes (Other)
  Sender: FDA-Public Use
  Company Number: GB-CIPLA LTD.-2014GB02889

PATIENT

DRUGS (3)
  1. HEPARIN [Suspect]
     Active Substance: HEPARIN SODIUM
     Indication: DEEP VEIN THROMBOSIS
     Dosage: UNK
     Route: 065
  2. CARBOPLATIN. [Suspect]
     Active Substance: CARBOPLATIN
     Indication: OVARIAN CANCER
     Dosage: 1 DF, EVERY MONTH (SOLUTION FOR INJECTION)
     Route: 065
  3. WARFARIN [Suspect]
     Active Substance: WARFARIN
     Indication: DEEP VEIN THROMBOSIS
     Dosage: UNK
     Route: 065

REACTIONS (7)
  - Microangiopathic haemolytic anaemia [Unknown]
  - Scleroderma [Unknown]
  - Duodenitis [Unknown]
  - Thrombotic microangiopathy [Unknown]
  - Gastritis [Unknown]
  - Acute kidney injury [Unknown]
  - Oesophagitis [Unknown]
